FAERS Safety Report 13920576 (Version 1)
Quarter: 2017Q3

REPORT INFORMATION
  Report Type: Spontaneous
  Country: US (occurrence: US)
  Receive Date: 20170830
  Receipt Date: 20170830
  Transmission Date: 20171127
  Serious: Yes (Other)
  Sender: FDA-Public Use
  Company Number: None

PATIENT
  Age: 32 Year
  Sex: Female
  Weight: 63 kg

DRUGS (2)
  1. NUVARING [Suspect]
     Active Substance: ETHINYL ESTRADIOL\ETONOGESTREL
     Indication: CONTRACEPTION
     Dosage: QUANTITY:1 VAGINAL INSERT;OTHER FREQUENCY:EVERY 28 DAYS;?
     Route: 067
     Dates: start: 20170423, end: 20170820
  2. DOXYCYCLINE. [Concomitant]
     Active Substance: DOXYCYCLINE

REACTIONS (1)
  - Acne cystic [None]

NARRATIVE: CASE EVENT DATE: 20170801
